FAERS Safety Report 20410962 (Version 4)
Quarter: 2022Q2

REPORT INFORMATION
  Report Type: Report from Study
  Country: CN (occurrence: CN)
  Receive Date: 20220201
  Receipt Date: 20220516
  Transmission Date: 20220721
  Serious: Yes (Other)
  Sender: FDA-Public Use
  Company Number: CN-TAKEDA-2021TUS051183

PATIENT
  Age: 64 Year
  Sex: Male
  Weight: 71 kg

DRUGS (48)
  1. IXAZOMIB [Suspect]
     Active Substance: IXAZOMIB
     Indication: Plasma cell myeloma
     Dosage: 4 MILLIGRAM, 1/WEEK
     Route: 048
     Dates: start: 20210601, end: 20210714
  2. IXAZOMIB [Suspect]
     Active Substance: IXAZOMIB
     Dosage: 4 MILLIGRAM, Q2WEEKS
     Route: 048
     Dates: start: 20211025
  3. HEPARIN SODIUM [Concomitant]
     Active Substance: HEPARIN SODIUM
     Indication: Thrombosis prophylaxis
     Dosage: UNK UNK, 1/WEEK
     Route: 042
     Dates: start: 20210531, end: 20210603
  4. SODIUM CHLORIDE [Concomitant]
     Active Substance: SODIUM CHLORIDE
     Indication: Thrombosis prophylaxis
     Dosage: 10 MILLILITER, TID
     Route: 042
     Dates: start: 20210531, end: 20210603
  5. TRAMADOL HCL [Concomitant]
     Active Substance: TRAMADOL HYDROCHLORIDE
     Indication: Back pain
     Dosage: 0.1 GRAM
     Route: 048
     Dates: start: 20210602, end: 20210603
  6. TRAMADOL HCL [Concomitant]
     Active Substance: TRAMADOL HYDROCHLORIDE
     Dosage: 0.1 GRAM, BID
     Route: 048
     Dates: start: 20210603, end: 20210610
  7. MECAPEGFILGRASTIM [Concomitant]
     Active Substance: MECAPEGFILGRASTIM
     Indication: Prophylaxis
     Dosage: 6 MILLIGRAM
     Route: 042
     Dates: start: 20210603, end: 20210603
  8. MECAPEGFILGRASTIM [Concomitant]
     Active Substance: MECAPEGFILGRASTIM
     Dosage: 6 MILLIGRAM
     Route: 058
     Dates: start: 20210703, end: 20210703
  9. ACYCLOVIR [Concomitant]
     Active Substance: ACYCLOVIR
     Indication: Prophylaxis
     Dosage: 0.4 GRAM, TID
     Route: 048
     Dates: start: 20210601, end: 20210603
  10. ACYCLOVIR [Concomitant]
     Active Substance: ACYCLOVIR
     Dosage: 0.4 GRAM, TID
     Route: 048
     Dates: start: 20210629, end: 20210703
  11. ACYCLOVIR [Concomitant]
     Active Substance: ACYCLOVIR
     Dosage: 0.4 GRAM, TID
     Route: 048
     Dates: start: 20210703, end: 20210710
  12. CALCITRIOL [Concomitant]
     Active Substance: CALCITRIOL
     Indication: Osteoporosis
     Dosage: 0.25 MICROGRAM, QD
     Route: 048
     Dates: start: 20210601, end: 20210603
  13. CALCITRIOL [Concomitant]
     Active Substance: CALCITRIOL
     Indication: Resorption bone increased
     Dosage: 0.25 MICROGRAM, QD
     Route: 048
     Dates: start: 20210603, end: 20210610
  14. CALCITRIOL [Concomitant]
     Active Substance: CALCITRIOL
     Dosage: 0.25 MICROGRAM, QD
     Route: 048
     Dates: start: 20210629, end: 20210703
  15. CALCITRIOL [Concomitant]
     Active Substance: CALCITRIOL
     Dosage: 0.25 MICROGRAM, QD
     Route: 048
     Dates: start: 20210703, end: 20210710
  16. CALCITRIOL [Concomitant]
     Active Substance: CALCITRIOL
     Dosage: 0.25 MICROGRAM, QD
     Route: 048
     Dates: start: 20210802, end: 20210806
  17. CALTRATE WITH VITAMIN D [Concomitant]
     Active Substance: CALCIUM CARBONATE\CHOLECALCIFEROL
     Indication: Osteoporosis
     Dosage: UNK UNK, QD
     Route: 048
     Dates: start: 20210601, end: 20210603
  18. CALTRATE WITH VITAMIN D [Concomitant]
     Active Substance: CALCIUM CARBONATE\CHOLECALCIFEROL
     Indication: Resorption bone increased
     Dosage: UNK, QD
     Route: 048
     Dates: start: 20210603
  19. CEFPODOXIME PROXETIL [Concomitant]
     Active Substance: CEFPODOXIME PROXETIL
     Indication: Pneumonia
     Dosage: 0.2 GRAM, QD
     Route: 048
     Dates: start: 20210603, end: 20210610
  20. CEFPODOXIME PROXETIL [Concomitant]
     Active Substance: CEFPODOXIME PROXETIL
     Dosage: 0.2 GRAM, BID
     Route: 048
     Dates: start: 20210703, end: 20210710
  21. DICLOFENAC SODIUM [Concomitant]
     Active Substance: DICLOFENAC SODIUM
     Indication: Analgesic therapy
     Dosage: 75 MILLIGRAM, QD
     Route: 048
     Dates: start: 20210603, end: 20210610
  22. DEXAMETHASONE ACETATE [Concomitant]
     Active Substance: DEXAMETHASONE ACETATE
     Indication: Plasma cell myeloma
     Dosage: 0.75 MICROGRAM, 1/WEEK
     Route: 048
     Dates: start: 20210603, end: 20210617
  23. DEXAMETHASONE ACETATE [Concomitant]
     Active Substance: DEXAMETHASONE ACETATE
     Dosage: 20 MILLIGRAM, 1/WEEK
     Route: 042
     Dates: start: 20210630, end: 20210703
  24. DEXAMETHASONE ACETATE [Concomitant]
     Active Substance: DEXAMETHASONE ACETATE
     Dosage: 20 MILLIGRAM, 1/WEEK
     Route: 048
     Dates: start: 20210707, end: 20210714
  25. AMMONIUM GLYCYRRHIZATE\CYSTEINE [Concomitant]
     Active Substance: AMMONIUM GLYCYRRHIZATE\CYSTEINE
     Indication: Prophylaxis
     Dosage: 100 MILLILITER, QD
     Route: 042
     Dates: start: 20210629, end: 20210702
  26. OMEPRAZOLE MAGNESIUM [Concomitant]
     Active Substance: OMEPRAZOLE MAGNESIUM
     Indication: Gastrointestinal disorder prophylaxis
     Dosage: 20 MILLIGRAM, QD
     Route: 048
     Dates: start: 20210603, end: 20210610
  27. OMEPRAZOLE MAGNESIUM [Concomitant]
     Active Substance: OMEPRAZOLE MAGNESIUM
     Dosage: 20 MILLIGRAM, QD
     Route: 048
     Dates: start: 20210629, end: 20210630
  28. VITAMINS [Concomitant]
     Active Substance: VITAMINS
     Indication: Vitamin supplementation
     Dosage: 5 MILLILITER, QD
     Route: 042
     Dates: start: 20210629, end: 20210702
  29. METHYLCOBALAMIN [Concomitant]
     Active Substance: METHYLCOBALAMIN
     Dosage: 0.5 MILLIGRAM, TID
     Route: 048
     Dates: start: 20210629, end: 20210703
  30. METHYLCOBALAMIN [Concomitant]
     Active Substance: METHYLCOBALAMIN
     Dosage: 0.5 MILLIGRAM, TID
     Route: 048
     Dates: start: 20210703, end: 20210710
  31. METHYLCOBALAMIN [Concomitant]
     Active Substance: METHYLCOBALAMIN
     Dosage: 0.5 MILLIGRAM, TID
     Route: 048
     Dates: start: 20210802, end: 20210806
  32. PANTOPRAZOLE SODIUM [Concomitant]
     Active Substance: PANTOPRAZOLE SODIUM
     Indication: Gastrointestinal disorder prophylaxis
     Dosage: 40 MILLIGRAM, QD
     Route: 042
     Dates: start: 20210630, end: 20210703
  33. VORICONAZOLE [Concomitant]
     Active Substance: VORICONAZOLE
     Indication: Pneumonia
     Dosage: 200 MILLIGRAM
     Route: 042
     Dates: start: 20210630, end: 20210702
  34. PIPERACILLIN SODIUM\TAZOBACTAM SODIUM [Concomitant]
     Active Substance: PIPERACILLIN SODIUM\TAZOBACTAM SODIUM
     Indication: Pneumonia
     Dosage: 4.5 GRAM
     Route: 042
     Dates: start: 20210630, end: 20210702
  35. HUMAN IMMUNOGLOBULIN G [Concomitant]
     Active Substance: HUMAN IMMUNOGLOBULIN G
     Indication: Immune system disorder
     Dosage: 1 GRAM
     Route: 042
     Dates: start: 20210629, end: 20210630
  36. ZOLEDRONIC ACID [Concomitant]
     Active Substance: ZOLEDRONIC ACID
     Indication: Osteoporosis
     Dosage: 4 MILLIGRAM
     Route: 042
     Dates: start: 20210629, end: 20210629
  37. TROPISETRON HYDROCHLORIDE [Concomitant]
     Active Substance: TROPISETRON HYDROCHLORIDE
     Indication: Prophylaxis
     Dosage: 4 MILLIGRAM
     Route: 042
     Dates: start: 20210630, end: 20210630
  38. DOXORUBICIN HYDROCHLORIDE [Concomitant]
     Active Substance: DOXORUBICIN HYDROCHLORIDE
     Indication: Plasma cell myeloma
     Dosage: 40 MILLIGRAM
     Route: 042
     Dates: start: 20210630, end: 20210630
  39. OMEPRAZOLE SODIUM [Concomitant]
     Active Substance: OMEPRAZOLE SODIUM
     Indication: Gastrointestinal disorder prophylaxis
     Dosage: 40 MILLIGRAM, QD
     Route: 042
     Dates: start: 20210601, end: 20210603
  40. LOPERAMIDE HYDROCHLORIDE [Concomitant]
     Active Substance: LOPERAMIDE HYDROCHLORIDE
     Indication: Diarrhoea
     Dosage: 4 MILLIGRAM
     Route: 048
     Dates: start: 20210702, end: 20210703
  41. VORICONAZOLE [Concomitant]
     Active Substance: VORICONAZOLE
     Indication: Pneumonia
     Dosage: 200 MILLIGRAM, BID
     Route: 048
     Dates: start: 20210703, end: 20210710
  42. VORICONAZOLE [Concomitant]
     Active Substance: VORICONAZOLE
     Dosage: 200 MILLIGRAM, BID
     Route: 048
     Dates: start: 20210802, end: 20210806
  43. LOSEC [Concomitant]
     Active Substance: OMEPRAZOLE
     Indication: Gastrointestinal disorder prophylaxis
     Dosage: 20 MILLIGRAM, QD
     Route: 048
     Dates: start: 20210703, end: 20210710
  44. VITAMIN B1 [Concomitant]
     Active Substance: THIAMINE HYDROCHLORIDE
     Indication: Vitamin supplementation
     Dosage: 0.01 GRAM, TID
     Route: 048
     Dates: start: 20210802, end: 20210806
  45. CALCIUM CARBONATE\CHOLECALCIFEROL [Concomitant]
     Active Substance: CALCIUM CARBONATE\CHOLECALCIFEROL
     Indication: Osteoporosis
     Dosage: UNK UNK, QD
     Route: 048
     Dates: start: 20210802, end: 20210806
  46. CYCLOPHOSPHAMIDE [Concomitant]
     Active Substance: CYCLOPHOSPHAMIDE
     Indication: Plasma cell myeloma
     Dosage: 2.5 GRAM, QD
     Route: 042
     Dates: start: 20210731, end: 20210801
  47. MESNA [Concomitant]
     Active Substance: MESNA
     Indication: Prophylaxis
     Dosage: 0.8 GRAM
     Route: 042
     Dates: start: 20210731, end: 20210731
  48. ZOLEDRONIC ACID [Concomitant]
     Active Substance: ZOLEDRONIC ACID
     Indication: Osteoporosis
     Dosage: 4 MILLIGRAM
     Route: 042
     Dates: start: 20210731, end: 20210731

REACTIONS (8)
  - Hypokalaemia [Recovered/Resolved]
  - Diarrhoea [Recovered/Resolved]
  - Dyspepsia [Recovered/Resolved]
  - Hyperuricaemia [Recovered/Resolved]
  - Dry eye [Recovered/Resolved]
  - Insomnia [Recovered/Resolved]
  - Hepatic function abnormal [Recovered/Resolved]
  - Off label use [Unknown]

NARRATIVE: CASE EVENT DATE: 20210603
